FAERS Safety Report 13814111 (Version 1)
Quarter: 2017Q3

REPORT INFORMATION
  Report Type: Spontaneous
  Country: US (occurrence: US)
  Receive Date: 20170730
  Receipt Date: 20170730
  Transmission Date: 20171127
  Serious: No
  Sender: FDA-Public Use
  Company Number: None

PATIENT
  Sex: Male
  Weight: 90 kg

DRUGS (14)
  1. QUETIAPINE. [Concomitant]
     Active Substance: QUETIAPINE
  2. CLONIDINE. [Concomitant]
     Active Substance: CLONIDINE
  3. POTASSIUM [Concomitant]
     Active Substance: POTASSIUM
  4. CALCIUM [Concomitant]
     Active Substance: CALCIUM
  5. VITAMIN D3 [Concomitant]
     Active Substance: CHOLECALCIFEROL
  6. DEXTROAMPHET SACCHARAT, AMPHET ASPARTATE, DEXTROAMPHET SULFATE AND AMPHET SULFAT [Concomitant]
     Active Substance: AMPHETAMINE ASPARTATE\AMPHETAMINE SULFATE\DEXTROAMPHETAMINE SACCHARATE\DEXTROAMPHETAMINE SULFATE
  7. BUPROPION HYDROCHLORIDE. [Suspect]
     Active Substance: BUPROPION HYDROCHLORIDE
     Indication: DEPRESSION
     Dosage: ?          QUANTITY:60 TABLET(S);?
     Route: 048
     Dates: start: 20140412, end: 20140612
  8. OMEGA 3-6-9 [Concomitant]
     Active Substance: FISH OIL
  9. ONE-A-DAY MEN^S MULTIVITAMIN [Concomitant]
  10. DOCUSATE SODIUM. [Concomitant]
     Active Substance: DOCUSATE SODIUM
  11. CLONAZEPAM. [Concomitant]
     Active Substance: CLONAZEPAM
  12. OMEGA 3-6-9 [Concomitant]
     Active Substance: FISH OIL
  13. VITAMIN C [Concomitant]
     Active Substance: ASCORBIC ACID
  14. ZINC. [Concomitant]
     Active Substance: ZINC

REACTIONS (14)
  - Suicidal ideation [None]
  - Frustration tolerance decreased [None]
  - Loss of employment [None]
  - Stress [None]
  - Disease recurrence [None]
  - Nausea [None]
  - Affective disorder [None]
  - Product substitution issue [None]
  - Depression [None]
  - Lethargy [None]
  - Economic problem [None]
  - Drug ineffective [None]
  - Pancreatic disorder [None]
  - Gastrointestinal ulcer [None]

NARRATIVE: CASE EVENT DATE: 20140630
